FAERS Safety Report 9690339 (Version 4)
Quarter: 2014Q3

REPORT INFORMATION
  Report Type: Spontaneous
  Country: US (occurrence: US)
  Receive Date: 20131115
  Receipt Date: 20140722
  Transmission Date: 20150326
  Serious: Yes (Hospitalization, Other)
  Sender: FDA-Public Use
  Company Number: US-BAYER-2013-136778

PATIENT
  Age: 32 Year
  Sex: Female
  Weight: 100.23 kg

DRUGS (4)
  1. NORCO [Concomitant]
     Active Substance: ACETAMINOPHEN\HYDROCODONE BITARTRATE
  2. MIRENA [Suspect]
     Active Substance: LEVONORGESTREL
     Indication: CONTRACEPTION
     Dosage: 20 MCG/24HR, CONT
     Route: 015
     Dates: start: 20110617, end: 20111108
  3. KEFLEX [Concomitant]
     Active Substance: CEPHALEXIN
  4. MOTRIN [Concomitant]
     Active Substance: IBUPROFEN

REACTIONS (16)
  - Device dislocation [None]
  - Fear [None]
  - Device difficult to use [None]
  - Abdominal pain [None]
  - Internal injury [None]
  - Genital haemorrhage [None]
  - Pelvic pain [None]
  - Uterine perforation [None]
  - Habitual abortion [None]
  - Ruptured ectopic pregnancy [None]
  - Injury [None]
  - Emotional distress [None]
  - Anxiety [None]
  - Ectopic pregnancy [None]
  - Medical device discomfort [None]
  - Depression [None]

NARRATIVE: CASE EVENT DATE: 201109
